FAERS Safety Report 8334698-2 (Version None)
Quarter: 2012Q2

REPORT INFORMATION
  Report Type: 
  Country: None (occurrence: None)
  Receive Date: 20120503
  Receipt Date: 20120424
  Transmission Date: 20120825
  Serious: Yes (Other)
  Sender: FDA-Public Use
  Company Number: US-JNJFOC-20120411472

PATIENT
  Sex: Male
  Weight: 78.02 kg

DRUGS (2)
  1. SIMPONI [Suspect]
     Indication: ARTHRITIS REACTIVE
     Route: 058
     Dates: start: 20110101
  2. VITAMIN [Concomitant]

REACTIONS (3)
  - MITRAL VALVE PROLAPSE [None]
  - MITRAL VALVE INCOMPETENCE [None]
  - LEFT ATRIAL DILATATION [None]
